FAERS Safety Report 5380242-1 (Version None)
Quarter: 2007Q3

REPORT INFORMATION
  Report Type: 
  Country: None (occurrence: None)
  Receive Date: 20070706
  Receipt Date: 20070514
  Transmission Date: 20080115
  Serious: No
  Sender: FDA-Public Use
  Company Number: A0651231A

PATIENT
  Age: 57 Year
  Sex: Female

DRUGS (15)
  1. TYKERB [Suspect]
     Indication: BREAST CANCER
     Dosage: 5TAB IN THE MORNING
     Route: 048
     Dates: start: 20070401
  2. XELODA [Concomitant]
  3. OXYCODONE HCL [Concomitant]
  4. VICODIN [Concomitant]
  5. CLONAZEPAM [Concomitant]
  6. EFFEXOR [Concomitant]
  7. NEXIUM [Concomitant]
  8. LISINOPRIL [Concomitant]
  9. CRESTOR [Concomitant]
  10. FUROSEMIDE [Concomitant]
  11. COREG [Concomitant]
  12. PROMETHAZINE [Concomitant]
  13. MARINOL [Concomitant]
  14. MAGIC MOUTHWASH [Concomitant]
  15. ADVIL LIQUI-GELS [Concomitant]

REACTIONS (9)
  - DIZZINESS [None]
  - EPISTAXIS [None]
  - HYPERSOMNIA [None]
  - IMPAIRED DRIVING ABILITY [None]
  - NAUSEA [None]
  - SCAB [None]
  - SLEEP DISORDER [None]
  - SOMNOLENCE [None]
  - VERTIGO [None]
